FAERS Safety Report 7486317-5 (Version None)
Quarter: 2011Q2

REPORT INFORMATION
  Report Type: 
  Country: None (occurrence: None)
  Receive Date: 20110517
  Receipt Date: 20110506
  Transmission Date: 20111010
  Serious: Yes (Other)
  Sender: FDA-Public Use
  Company Number: CA-JNJFOC-20110503141

PATIENT
  Sex: Male
  Weight: 106.6 kg

DRUGS (3)
  1. STELARA [Suspect]
     Indication: PSORIASIS
     Route: 058
     Dates: start: 20090330, end: 20110216
  2. LIPITOR [Concomitant]
  3. VITAMIN B-12 [Concomitant]

REACTIONS (1)
  - RENAL CANCER [None]
